FAERS Safety Report 9146218 (Version 1)
Quarter: 2013Q1

REPORT INFORMATION
  Report Type: Spontaneous
  Country: US (occurrence: US)
  Receive Date: 20130307
  Receipt Date: 20130307
  Transmission Date: 20140127
  Serious: Yes (Other)
  Sender: FDA-Public Use
  Company Number: US-ASTELLAS-2013US001647

PATIENT
  Sex: Female

DRUGS (2)
  1. MYRBETRIQ [Suspect]
     Indication: BLADDER DISORDER
     Dosage: UNK
     Route: 065
     Dates: start: 201301
  2. LORAZEPAM [Concomitant]
     Indication: PRODUCT USED FOR UNKNOWN INDICATION
     Dosage: 0.5 MG, UID/QD
     Route: 065

REACTIONS (8)
  - Off label use [Unknown]
  - Haemorrhage [Unknown]
  - Haematuria [Unknown]
  - Genital discomfort [Unknown]
  - Erythema [Unknown]
  - Constipation [Unknown]
  - Diarrhoea [Unknown]
  - Urinary tract infection [Unknown]
